FAERS Safety Report 14807133 (Version 1)
Quarter: 2018Q2

REPORT INFORMATION
  Report Type: Spontaneous
  Country: US (occurrence: US)
  Receive Date: 20180425
  Receipt Date: 20180425
  Transmission Date: 20180711
  Serious: No
  Sender: FDA-Public Use
  Company Number: US-ROCHE-2055212

PATIENT
  Age: 48 Year
  Sex: Female
  Weight: 78.09 kg

DRUGS (6)
  1. OCREVUS [Suspect]
     Active Substance: OCRELIZUMAB
     Indication: PRIMARY PROGRESSIVE MULTIPLE SCLEROSIS
     Dosage: FIRST HALF OF OCREVUS INFUSION
     Route: 042
     Dates: start: 201707, end: 201707
  2. OCREVUS [Suspect]
     Active Substance: OCRELIZUMAB
     Dosage: SECOND HALF OF OCREVUS INFUSION
     Route: 042
     Dates: start: 20170731, end: 20170731
  3. OCREVUS [Suspect]
     Active Substance: OCRELIZUMAB
     Route: 042
  4. METFORMIN [Concomitant]
     Active Substance: METFORMIN HYDROCHLORIDE
     Indication: TYPE 1 DIABETES MELLITUS
     Route: 048
  5. INSULIN COVERAGE [Concomitant]
     Indication: TYPE 1 DIABETES MELLITUS
     Route: 058
  6. NIFEDIPINE. [Concomitant]
     Active Substance: NIFEDIPINE
     Indication: POLYCYTHAEMIA
     Dosage: ADMINISTERED ^HER WHOLE LIFE^
     Route: 065

REACTIONS (7)
  - Choking [Not Recovered/Not Resolved]
  - Dizziness [Not Recovered/Not Resolved]
  - Fear of falling [Not Recovered/Not Resolved]
  - Muscle spasticity [Not Recovered/Not Resolved]
  - Fall [Unknown]
  - Speech disorder [Not Recovered/Not Resolved]
  - Muscle spasms [Not Recovered/Not Resolved]

NARRATIVE: CASE EVENT DATE: 201712
